FAERS Safety Report 19694948 (Version 1)
Quarter: 2021Q3

REPORT INFORMATION
  Report Type: Report from Study
  Country: IT (occurrence: IT)
  Receive Date: 20210813
  Receipt Date: 20210813
  Transmission Date: 20211014
  Serious: Yes (Hospitalization)
  Sender: FDA-Public Use
  Company Number: IT-ACCORD-235153

PATIENT
  Age: 85 Year
  Sex: Male

DRUGS (7)
  1. CLOPIDOGREL [Suspect]
     Active Substance: CLOPIDOGREL BISULFATE
     Indication: PRODUCT USED FOR UNKNOWN INDICATION
     Route: 048
     Dates: start: 20210101, end: 20210511
  2. PANTOFIR [Concomitant]
     Dosage: STRENGTH 20 MG
  3. BISOPROLOL [Concomitant]
     Active Substance: BISOPROLOL
  4. URBASON [Concomitant]
     Active Substance: METHYLPREDNISOLONE
     Dosage: STRENGTH 4 MG
  5. XATRAL [Concomitant]
     Active Substance: ALFUZOSIN
     Dosage: STRENGTH 10 MG
  6. LASIX [Concomitant]
     Active Substance: FUROSEMIDE
     Dosage: STRENGTH 25 MG
  7. BIVIS [Concomitant]
     Active Substance: AMLODIPINE BESYLATE\OLMESARTAN MEDOXOMIL
     Dosage: STRENGTH 20 MG / 5 MG

REACTIONS (1)
  - Rectal haemorrhage [Not Recovered/Not Resolved]

NARRATIVE: CASE EVENT DATE: 20210511
